FAERS Safety Report 6866009-3 (Version None)
Quarter: 2010Q3

REPORT INFORMATION
  Report Type: 
  Country: None (occurrence: None)
  Receive Date: 20100722
  Receipt Date: 20100706
  Transmission Date: 20110219
  Serious: Yes (Hospitalization)
  Sender: FDA-Public Use
  Company Number: FR-JNJFOC-20100705499

PATIENT
  Age: 74 Year
  Sex: Female

DRUGS (2)
  1. TOPALGIC [Suspect]
     Indication: BACK PAIN
     Dosage: ONCE
     Route: 048
  2. PARACETAMOL [Concomitant]
     Route: 065

REACTIONS (5)
  - ATRIOVENTRICULAR BLOCK FIRST DEGREE [None]
  - DIZZINESS [None]
  - HYPERHIDROSIS [None]
  - MALAISE [None]
  - VOMITING [None]
